FAERS Safety Report 12201681 (Version 1)
Quarter: 2016Q1

REPORT INFORMATION
  Report Type: Spontaneous
  Country: US (occurrence: US)
  Receive Date: 20160322
  Receipt Date: 20160322
  Transmission Date: 20160526
  Serious: No
  Sender: FDA-Public Use
  Company Number: US-SA-2015SA204223

PATIENT
  Age: 66 Year
  Sex: Female

DRUGS (2)
  1. TRIAMCINOLONE ACETONIDE. [Suspect]
     Active Substance: TRIAMCINOLONE ACETONIDE
     Indication: MULTIPLE ALLERGIES
     Dosage: DOSE- 2 SPRAYS EACH NOSTRILS DAILY DOSE:2 UNIT(S)
     Route: 045
     Dates: start: 2015, end: 20151116
  2. TRIAMCINOLONE ACETONIDE. [Suspect]
     Active Substance: TRIAMCINOLONE ACETONIDE
     Indication: MULTIPLE ALLERGIES
     Dosage: DOSE- 2 SPRAYS EACH NOSTRILS DAILY DOSE:2 UNIT(S)
     Route: 045
     Dates: start: 2015, end: 20151116

REACTIONS (1)
  - Blood glucose increased [Recovered/Resolved]
